FAERS Safety Report 6913735-3 (Version None)
Quarter: 2010Q3

REPORT INFORMATION
  Report Type: 
  Country: None (occurrence: None)
  Receive Date: 20100809
  Receipt Date: 20100707
  Transmission Date: 20110219
  Serious: No
  Sender: FDA-Public Use
  Company Number: US-BAYER-201017983BCC

PATIENT
  Age: 80 Year
  Sex: Female
  Weight: 62 kg

DRUGS (13)
  1. ALEVE [Suspect]
     Indication: OSTEOARTHRITIS
     Dosage: TOOK 1 ALEVE TABLET DAILY AND ON OCCASION TOOK 2 TABLETS ON UNKNOWN DATES
     Route: 048
     Dates: start: 20100601
  2. TETRACYCLINE [Concomitant]
     Route: 065
  3. LEPSIN [Concomitant]
     Route: 065
  4. ADMAN [Concomitant]
     Route: 065
  5. BIOTIN [Concomitant]
     Route: 065
  6. TAGAMET [Concomitant]
     Route: 065
  7. LOPRESSOR [Concomitant]
     Route: 065
  8. PRAVASTATIN [Concomitant]
     Route: 065
  9. LEVOTHROID [Concomitant]
     Route: 065
  10. VITAMIN E [Concomitant]
     Route: 065
  11. VITAMIN D [Concomitant]
     Route: 065
  12. FOLIC ACID [Concomitant]
     Route: 065
  13. CALCIUM [Concomitant]
     Route: 065

REACTIONS (2)
  - FINGER DEFORMITY [None]
  - PRURITUS [None]
